FAERS Safety Report 11139807 (Version 1)
Quarter: 2015Q2

REPORT INFORMATION
  Report Type: Spontaneous
  Country: US (occurrence: None)
  Receive Date: 20150526
  Receipt Date: 20150526
  Transmission Date: 20150821
  Serious: No
  Sender: FDA-Public Use
  Company Number: None

PATIENT
  Age: 46 Year
  Sex: Male
  Weight: 76.66 kg

DRUGS (2)
  1. IBUPROFEN ORAL SUSPENSION USP, 100 MG/5 ML (RX) (ALPHARMA) (IBUPROFEN) [Suspect]
     Active Substance: IBUPROFEN
     Indication: HEADACHE
     Dosage: DATES USED: 1 TIME??6-8 HOURS ORAL
     Route: 048
  2. IBUPROFEN ORAL SUSPENSION USP, 100 MG/5 ML (RX) (ALPHARMA) (IBUPROFEN) [Suspect]
     Active Substance: IBUPROFEN
     Indication: PYREXIA
     Dosage: DATES USED: 1 TIME??6-8 HOURS ORAL
     Route: 048

REACTIONS (5)
  - Oropharyngeal pain [None]
  - Product taste abnormal [None]
  - Throat irritation [None]
  - Product quality issue [None]
  - Oral discomfort [None]

NARRATIVE: CASE EVENT DATE: 20150523
